FAERS Safety Report 21466262 (Version 4)
Quarter: 2025Q1

REPORT INFORMATION
  Report Type: Spontaneous
  Country: US (occurrence: GB)
  Receive Date: 20221017
  Receipt Date: 20250312
  Transmission Date: 20250409
  Serious: No
  Sender: DAIICHI
  Company Number: US-DSJP-DSU-2022-137156

PATIENT
  Sex: Female

DRUGS (2)
  1. ENHERTU [Suspect]
     Active Substance: FAM-TRASTUZUMAB DERUXTECAN-NXKI
     Indication: Breast cancer metastatic
     Route: 065
  2. ENHERTU [Suspect]
     Active Substance: FAM-TRASTUZUMAB DERUXTECAN-NXKI
     Route: 065

REACTIONS (10)
  - Neuropathy peripheral [Unknown]
  - Neuropathy peripheral [Unknown]
  - Lung disorder [Unknown]
  - Parosmia [Unknown]
  - Hyperacusis [Unknown]
  - Anger [Unknown]
  - Flatulence [Unknown]
  - Flatulence [Unknown]
  - Eructation [Unknown]
  - Drug ineffective [Unknown]
